FAERS Safety Report 16407478 (Version 1)
Quarter: 2019Q2

REPORT INFORMATION
  Report Type: Spontaneous
  Country: PL (occurrence: PL)
  Receive Date: 20190608
  Receipt Date: 20190608
  Transmission Date: 20190711
  Serious: Yes (Other)
  Sender: FDA-Public Use
  Company Number: PHHY2019PL128429

PATIENT
  Age: 77 Year
  Sex: Female

DRUGS (1)
  1. SANDOSTATIN LAR DEPOT [Suspect]
     Active Substance: OCTREOTIDE ACETATE
     Indication: NEUROENDOCRINE TUMOUR
     Dosage: EVERY 28 DAYS
     Route: 065
     Dates: start: 201208

REACTIONS (8)
  - Tricuspid valve incompetence [Recovering/Resolving]
  - Malignant neoplasm progression [Unknown]
  - Cardiac failure chronic [Unknown]
  - Cardiovascular symptom [Unknown]
  - Carcinoid heart disease [Unknown]
  - Chronic kidney disease [Unknown]
  - Abdominal pain upper [Unknown]
  - Metastases to liver [Unknown]

NARRATIVE: CASE EVENT DATE: 201406
